FAERS Safety Report 6581353-5 (Version None)
Quarter: 2010Q1

REPORT INFORMATION
  Report Type: 
  Country: None (occurrence: None)
  Receive Date: 20100203
  Receipt Date: 20100119
  Transmission Date: 20100710
  Serious: Yes (Life-Threatening, Hospitalization)
  Sender: FDA-Public Use
  Company Number: 1000011541

PATIENT
  Sex: Male
  Weight: 3.7 kg

DRUGS (1)
  1. ESCITALOPRAM OXALATE [Suspect]
     Dosage: TRANSPLACENTAL
     Route: 064
     Dates: end: 20091126

REACTIONS (6)
  - CRYING [None]
  - DIARRHOEA NEONATAL [None]
  - DRUG WITHDRAWAL SYNDROME NEONATAL [None]
  - HYPERHIDROSIS [None]
  - MATERNAL DRUGS AFFECTING FOETUS [None]
  - RESTLESSNESS [None]
